FAERS Safety Report 7729772-5 (Version None)
Quarter: 2011Q3

REPORT INFORMATION
  Report Type: 
  Country: None (occurrence: None)
  Receive Date: 20110906
  Receipt Date: 20110831
  Transmission Date: 20111222
  Serious: Yes (Hospitalization)
  Sender: FDA-Public Use
  Company Number: DE-ROCHE-690298

PATIENT
  Sex: Female
  Weight: 68 kg

DRUGS (8)
  1. AROMASIN [Concomitant]
     Dates: start: 20100201
  2. CYCLOPHOSPHAMIDE [Suspect]
     Indication: BREAST CANCER
     Dosage: DATE OF LAST DOSE PRIOR TO SAE 10 SEPTEMBER 2009.
     Route: 042
     Dates: start: 20090709
  3. LEVOTHYROXINE SODIUM [Concomitant]
     Dates: start: 19800101
  4. EPIRUBICIN [Suspect]
     Indication: BREAST CANCER
     Dosage: LAST DOSE PRIOR TO SAE 10 SEPTEMBER 2009.
     Route: 042
     Dates: start: 20090709
  5. TRASTUZUMAB [Suspect]
     Indication: BREAST CANCER
     Dosage: DOSE AND FREQUENCY AS PER PROTOCOL..
     Route: 042
  6. TRASTUZUMAB [Suspect]
     Route: 042
     Dates: start: 20100203, end: 20100224
  7. LAPATINIB [Suspect]
     Indication: BREAST CANCER
     Dosage: DATE OF LAST DOSE PRIOR TO SAE 23 DECEMBER 2009.
     Route: 048
     Dates: start: 20090709
  8. DOCETAXEL [Suspect]
     Indication: BREAST CANCER
     Dosage: LAST DOSE PRIOR TO SAE WAS 03 DECEMBER 2009.
     Route: 042
     Dates: start: 20091001

REACTIONS (1)
  - MUSCULOSKELETAL CHEST PAIN [None]
